FAERS Safety Report 18723666 (Version 1)
Quarter: 2021Q1

REPORT INFORMATION
  Report Type: Report from Study
  Country: JP (occurrence: JP)
  Receive Date: 20210111
  Receipt Date: 20210111
  Transmission Date: 20210419
  Serious: Yes (Hospitalization)
  Sender: FDA-Public Use
  Company Number: JP-ROCHE-2652960

PATIENT
  Age: 23 Year
  Sex: Female
  Weight: 61.6 kg

DRUGS (12)
  1. SATRALIZUMAB. [Suspect]
     Active Substance: SATRALIZUMAB
     Indication: NEUROMYELITIS OPTICA SPECTRUM DISORDER
     Dosage: ON 26/JUL/2020, THE PATIENT RECEIVED THE MOST RECENT DOSE OF SATRALIZUMAB PRIOR TO ADVERSE EVENT ONS
     Route: 058
     Dates: start: 20150216
  2. BRUFEN [Concomitant]
     Active Substance: IBUPROFEN
     Dates: start: 20160629, end: 20200728
  3. PLACEBO [Suspect]
     Active Substance: UNSPECIFIED INGREDIENT
     Indication: NEUROMYELITIS OPTICA SPECTRUM DISORDER
     Dosage: SATRALIZUMAB WILL BE ADMINISTERED SUBCUTANEOUSLY (SC) AT WEEKS 0, 2, AND 4, AND THEREAFTER ONCE EVER
     Route: 058
  4. AZULENE SODIUM SULFONATE;LEVOGLUTAMIDE [Concomitant]
     Dates: start: 20190401, end: 20200728
  5. ALFACALCIDOL [Concomitant]
     Active Substance: ALFACALCIDOL
     Dosage: 2 TABLETS
     Dates: start: 20120730, end: 20200728
  6. JUVELA N [Concomitant]
     Active Substance: TOCOPHERYL NICOTINATE, D-.ALPHA.
     Dosage: 4 CAPSULE
     Dates: start: 20150901, end: 20200728
  7. AZATHIOPRINE. [Suspect]
     Active Substance: AZATHIOPRINE
     Indication: PRODUCT USED FOR UNKNOWN INDICATION
     Route: 065
     Dates: start: 20200314
  8. PREDNISOLONE. [Concomitant]
     Active Substance: PREDNISOLONE
     Dates: start: 20190903
  9. LOXOPROFEN NA [Concomitant]
     Active Substance: LOXOPROFEN SODIUM
     Dates: start: 20170709, end: 20200728
  10. NEUROTROPIN (JAPAN) [Concomitant]
     Dosage: 4 TABLETS
     Dates: start: 20181119, end: 20200728
  11. LANSOPRAZOLE. [Concomitant]
     Active Substance: LANSOPRAZOLE
     Dates: start: 20171222
  12. POVIDONE?IODINE. [Concomitant]
     Active Substance: POVIDONE-IODINE
     Dates: start: 20200221, end: 20200728

REACTIONS (1)
  - Pancreatitis acute [Recovered/Resolved]

NARRATIVE: CASE EVENT DATE: 20200728
